FAERS Safety Report 9833744 (Version 2)
Quarter: 2014Q1

REPORT INFORMATION
  Report Type: Report from Study
  Country: UY (occurrence: UY)
  Receive Date: 20140122
  Receipt Date: 20140122
  Transmission Date: 20141002
  Serious: Yes (Other)
  Sender: FDA-Public Use
  Company Number: UY-ROCHE-1298730

PATIENT
  Sex: Male

DRUGS (1)
  1. XELODA [Suspect]
     Indication: COLORECTAL CANCER
     Dosage: 1500 MG AM AND 1000 MG PM
     Route: 048
     Dates: start: 20130830, end: 20140114

REACTIONS (4)
  - Fall [Unknown]
  - Weight decreased [Unknown]
  - Skin disorder [Unknown]
  - Immune system disorder [Unknown]
